FAERS Safety Report 4924072-0 (Version None)
Quarter: 2006Q1

REPORT INFORMATION
  Report Type: 
  Country: None (occurrence: None)
  Receive Date: 20060227
  Receipt Date: 20051103
  Transmission Date: 20060701
  Serious: No
  Sender: FDA-Public Use
  Company Number: US-GLAXOSMITHKLINE-A0581263A

PATIENT
  Sex: Male

DRUGS (2)
  1. WELLBUTRIN XL [Suspect]
     Indication: DRUG USE FOR UNKNOWN INDICATION
     Route: 048
  2. EFFEXOR XR [Concomitant]

REACTIONS (1)
  - WEIGHT INCREASED [None]
